FAERS Safety Report 9001452 (Version 2)
Quarter: 2013Q1

REPORT INFORMATION
  Report Type: Spontaneous
  Country: TR (occurrence: TR)
  Receive Date: 20130107
  Receipt Date: 20130107
  Transmission Date: 20140127
  Serious: Yes (Hospitalization)
  Sender: FDA-Public Use
  Company Number: PHHY2013TR001151

PATIENT
  Age: 70 Year
  Sex: Female

DRUGS (3)
  1. LEVETIRACETAM [Suspect]
     Indication: PROPHYLAXIS
     Dosage: 500 MG, BID
  2. LEVETIRACETAM [Suspect]
     Indication: CONVULSION
  3. ACETYLSALICYLATE [Concomitant]
     Indication: APHASIA
     Dosage: 300 MG, UNK

REACTIONS (11)
  - Pemphigoid [Recovered/Resolved]
  - Blister [Recovered/Resolved]
  - Skin lesion [Recovered/Resolved]
  - Rash erythematous [Recovered/Resolved]
  - Purpura [Recovered/Resolved]
  - Skin plaque [Recovered/Resolved]
  - Papule [Recovered/Resolved]
  - Skin erosion [Not Recovered/Not Resolved]
  - Dermatitis [Recovered/Resolved]
  - Skin hypopigmentation [Not Recovered/Not Resolved]
  - Nikolsky^s sign [Recovered/Resolved]
